FAERS Safety Report 7275329-2 (Version None)
Quarter: 2011Q1

REPORT INFORMATION
  Report Type: 
  Country: None (occurrence: None)
  Receive Date: 20110204
  Receipt Date: 20110201
  Transmission Date: 20110831
  Serious: Yes (Death)
  Sender: FDA-Public Use
  Company Number: PHHO2011CN01526

PATIENT
  Sex: Female
  Weight: 60 kg

DRUGS (1)
  1. EVEROLIMUS [Suspect]
     Indication: METASTATIC RENAL CELL CARCINOMA
     Dosage: 10 MG, QD
     Route: 048
     Dates: start: 20100730, end: 20110112

REACTIONS (3)
  - DYSPNOEA [None]
  - MULTI-ORGAN FAILURE [None]
  - NEOPLASM MALIGNANT [None]
